FAERS Safety Report 9158254 (Version 3)
Quarter: 2013Q4

REPORT INFORMATION
  Report Type: Report from Study
  Country: FR (occurrence: FR)
  Receive Date: 20130312
  Receipt Date: 20131205
  Transmission Date: 20140711
  Serious: Yes (Life-Threatening, Hospitalization)
  Sender: FDA-Public Use
  Company Number: FR-PFIZER INC-2013079814

PATIENT
  Age: 50 Year
  Sex: Female
  Weight: 57 kg

DRUGS (6)
  1. ATGAM [Suspect]
     Indication: BONE MARROW FAILURE
     Dosage: 40 MG/KG, DAILY
     Route: 042
     Dates: start: 20120801, end: 20120804
  2. SOLU-MEDROL [Concomitant]
     Indication: BONE MARROW FAILURE
     Dosage: 1 MG/KG, DAILY
  3. SOLU-MEDROL [Concomitant]
     Dosage: 2 MG/KG, DAILY
  4. CICLOSPORIN [Concomitant]
     Indication: BONE MARROW FAILURE
     Dosage: 5 MG/KG, DAILY
  5. POLARAMINE [Concomitant]
     Indication: PREMEDICATION
  6. PARACETAMOL [Concomitant]
     Indication: PREMEDICATION

REACTIONS (1)
  - Bronchopulmonary aspergillosis [Recovered/Resolved with Sequelae]
